FAERS Safety Report 4307698-7 (Version None)
Quarter: 2004Q1

REPORT INFORMATION
  Report Type: 
  Country: None (occurrence: None)
  Receive Date: 20040226
  Receipt Date: 20040219
  Transmission Date: 20041129
  Serious: Yes (Other)
  Sender: FDA-Public Use
  Company Number: FRWYE596323FEB04

PATIENT

DRUGS (1)
  1. EFFEXO               (VENLAFAXINE HYDROCHLORIDE) [Suspect]
     Route: 048

REACTIONS (2)
  - CONDITION AGGRAVATED [None]
  - SUICIDAL IDEATION [None]
